FAERS Safety Report 6103250-1 (Version None)
Quarter: 2009Q1

REPORT INFORMATION
  Report Type: 
  Country: None (occurrence: None)
  Receive Date: 20090305
  Receipt Date: 20090225
  Transmission Date: 20090719
  Serious: Yes (Hospitalization, Other)
  Sender: FDA-Public Use
  Company Number: US-AMGEN-US308747

PATIENT
  Sex: Male
  Weight: 69.5 kg

DRUGS (5)
  1. PROCRIT [Suspect]
     Indication: ANAEMIA
     Route: 065
     Dates: start: 20070517, end: 20080314
  2. ARANESP [Suspect]
     Indication: ANAEMIA
     Route: 058
     Dates: start: 20080828
  3. CELLCEPT [Concomitant]
     Route: 065
     Dates: start: 20080814, end: 20090115
  4. INTERFERON [Concomitant]
     Route: 065
     Dates: start: 20070330, end: 20080229
  5. RIBAVIRIN [Concomitant]
     Route: 065
     Dates: start: 20070330, end: 20080229

REACTIONS (3)
  - ANAEMIA [None]
  - ANTI-ERYTHROPOIETIN ANTIBODY POSITIVE [None]
  - APLASIA PURE RED CELL [None]
